FAERS Safety Report 4339780-2 (Version None)
Quarter: 2004Q2

REPORT INFORMATION
  Report Type: 
  Country: None (occurrence: None)
  Receive Date: 20040414
  Receipt Date: 20040414
  Transmission Date: 20050107
  Serious: Yes (Life-Threatening, Hospitalization)
  Sender: FDA-Public Use
  Company Number: None

PATIENT
  Age: 55 Year
  Sex: Female
  Weight: 49.8957 kg

DRUGS (2)
  1. CLINDAMYCIN [Suspect]
     Indication: GINGIVAL INFECTION
     Dosage: 4/DAY
     Dates: start: 20030407, end: 20030507
  2. CLINDAMYCIN [Suspect]
     Indication: TOOTH INFECTION
     Dosage: 4/DAY
     Dates: start: 20030407, end: 20030507

REACTIONS (2)
  - APPENDICECTOMY [None]
  - CLOSTRIDIUM COLITIS [None]
